FAERS Safety Report 15328999 (Version 2)
Quarter: 2018Q4

REPORT INFORMATION
  Report Type: Spontaneous
  Country: IN (occurrence: IN)
  Receive Date: 20180829
  Receipt Date: 20180904
  Transmission Date: 20190204
  Serious: Yes (Hospitalization)
  Sender: FDA-Public Use
  Company Number: IN-STRIDES ARCOLAB LIMITED-2018SP007149

PATIENT

DRUGS (9)
  1. VALPROATE [Concomitant]
     Active Substance: VALPROIC ACID
     Indication: SEIZURE
     Dosage: UNK
     Route: 065
  2. RISPERIDONE. [Interacting]
     Active Substance: RISPERIDONE
     Indication: SCHIZOPHRENIA
     Dosage: UNK
     Route: 065
  3. RISPERIDONE. [Interacting]
     Active Substance: RISPERIDONE
     Dosage: 0.5 MG, PER DAY
     Route: 065
     Dates: start: 201603
  4. CITICOLINE [Interacting]
     Active Substance: CITICOLINE
     Indication: MEMORY IMPAIRMENT
     Dosage: 500 MG, PER DAY
     Route: 065
     Dates: start: 201603
  5. DONEPEZIL. [Suspect]
     Active Substance: DONEPEZIL
     Indication: MEMORY IMPAIRMENT
     Dosage: 10 MG, PER DAY
     Route: 065
     Dates: start: 201603
  6. OXCARBAZEPINE. [Concomitant]
     Active Substance: OXCARBAZEPINE
     Indication: SEIZURE
     Dosage: 600 MG, BID
     Route: 065
     Dates: start: 201603
  7. CLOBAZAM. [Concomitant]
     Active Substance: CLOBAZAM
     Indication: SEIZURE
     Dosage: 10 MG/DAY
     Route: 065
     Dates: start: 201603
  8. PIRACETAM [Interacting]
     Active Substance: PIRACETAM
     Indication: MEMORY IMPAIRMENT
     Dosage: 800 MG, TID
     Route: 065
     Dates: start: 201603
  9. OLMESARTAN [Concomitant]
     Active Substance: OLMESARTAN
     Indication: PRODUCT USED FOR UNKNOWN INDICATION
     Dosage: 20 MG/DAY
     Route: 065
     Dates: start: 201603

REACTIONS (14)
  - Depressed level of consciousness [Recovered/Resolved]
  - Urinary incontinence [Recovered/Resolved]
  - Pyrexia [Recovered/Resolved]
  - Hypokinesia [Recovered/Resolved]
  - Muscle rigidity [Recovered/Resolved]
  - Disorientation [Recovered/Resolved]
  - Tremor [Recovered/Resolved]
  - Drug interaction [Unknown]
  - Poverty of speech [Recovered/Resolved]
  - Agitation [Recovered/Resolved]
  - Neuroleptic malignant syndrome [Recovered/Resolved]
  - Mental status changes [Recovered/Resolved]
  - Reduced facial expression [Recovered/Resolved]
  - Dysphagia [Recovered/Resolved]
